FAERS Safety Report 11294209 (Version 2)
Quarter: 2015Q3

REPORT INFORMATION
  Report Type: Spontaneous
  Country: US (occurrence: US)
  Receive Date: 20150722
  Receipt Date: 20150916
  Transmission Date: 20151125
  Serious: No
  Sender: FDA-Public Use
  Company Number: US-ELI_LILLY_AND_COMPANY-US200801004786

PATIENT
  Sex: Female

DRUGS (3)
  1. FORTEO [Suspect]
     Active Substance: TERIPARATIDE
     Dates: start: 200508, end: 2007
  2. MIACALCIN [Concomitant]
     Active Substance: CALCITONIN SALMON
  3. EVISTA [Suspect]
     Active Substance: RALOXIFENE HYDROCHLORIDE

REACTIONS (7)
  - Muscular weakness [Recovered/Resolved]
  - Insomnia [Unknown]
  - Vulvovaginal pain [Recovered/Resolved]
  - Vaginal haemorrhage [Recovered/Resolved]
  - Depression [Unknown]
  - Fatigue [Recovered/Resolved]
  - Feeling abnormal [Recovered/Resolved]

NARRATIVE: CASE EVENT DATE: 2006
